FAERS Safety Report 17170400 (Version 1)
Quarter: 2019Q4

REPORT INFORMATION
  Report Type: Report from Study
  Country: FR (occurrence: FR)
  Receive Date: 20191218
  Receipt Date: 20191218
  Transmission Date: 20200122
  Serious: Yes (Hospitalization)
  Sender: FDA-Public Use
  Company Number: FR-PFIZER INC-2019538860

PATIENT
  Age: 61 Year
  Sex: Female

DRUGS (4)
  1. ARACYTINE [Suspect]
     Active Substance: CYTARABINE
     Indication: LYMPHOMA
     Dosage: 1600 MG/M2, UNK (TOTAL DOSE)
     Route: 042
     Dates: start: 20150507, end: 20150510
  2. BENDAMUSTINE HYDROCHLORIDE. [Suspect]
     Active Substance: BENDAMUSTINE HYDROCHLORIDE
     Indication: LYMPHOMA
     Dosage: 400 MG/M2, CYCLIC (TOTAL DOSE)
     Route: 042
     Dates: start: 20150505, end: 20150506
  3. ALKERAN [Suspect]
     Active Substance: MELPHALAN
     Indication: LYMPHOMA
     Dosage: 280 MG/M2, UNK
     Route: 042
     Dates: start: 20150511, end: 20150511
  4. VEPESIDE [Suspect]
     Active Substance: ETOPOSIDE
     Indication: LYMPHOMA
     Dosage: 800 MG/M2, UNK (IN TOTAL)
     Route: 042
     Dates: start: 20150507, end: 20150510

REACTIONS (1)
  - Haematoma [Recovered/Resolved]

NARRATIVE: CASE EVENT DATE: 20151019
